FAERS Safety Report 4558799-X (Version None)
Quarter: 2005Q1

REPORT INFORMATION
  Report Type: 
  Country: None (occurrence: None)
  Receive Date: 20050121
  Receipt Date: 20050111
  Transmission Date: 20050727
  Serious: Yes (Hospitalization)
  Sender: FDA-Public Use
  Company Number: FR-GLAXOSMITHKLINE-B0363970A

PATIENT
  Age: 76 Year
  Sex: Female

DRUGS (15)
  1. DEROXAT [Suspect]
     Route: 048
     Dates: end: 20040927
  2. NOOTROPYL [Suspect]
     Route: 048
     Dates: end: 20040927
  3. MOPRAL [Suspect]
     Dates: end: 20040927
  4. DURAGESIC [Suspect]
     Route: 061
     Dates: end: 20040927
  5. CELEBREX [Suspect]
     Route: 048
     Dates: end: 20040927
  6. DAONIL [Suspect]
     Route: 048
     Dates: end: 20040927
  7. RISPERDAL [Suspect]
  8. SKENAN [Concomitant]
  9. STAGID [Concomitant]
     Dates: end: 20040927
  10. GLUCOR [Concomitant]
     Dates: end: 20040927
  11. INSULIN [Concomitant]
  12. CHRONADALATE [Concomitant]
  13. NITROGLYCERIN [Concomitant]
  14. XANAX [Concomitant]
  15. FOSINOPRIL SODIUM [Concomitant]

REACTIONS (2)
  - ABNORMAL BEHAVIOUR [None]
  - EXTRAPYRAMIDAL DISORDER [None]
